FAERS Safety Report 8437409-5 (Version None)
Quarter: 2012Q2

REPORT INFORMATION
  Report Type: 
  Country: None (occurrence: None)
  Receive Date: 20120614
  Receipt Date: 20120320
  Transmission Date: 20120825
  Serious: No
  Sender: FDA-Public Use
  Company Number: US-AMGEN-USASP2011062986

PATIENT
  Age: 60 Year
  Sex: Female
  Weight: 55.329 kg

DRUGS (1)
  1. PROLIA [Suspect]
     Indication: OSTEOPOROSIS POSTMENOPAUSAL
     Dosage: 60 MG, Q6MO
     Dates: start: 20111011, end: 20111101

REACTIONS (4)
  - HYPOAESTHESIA ORAL [None]
  - AGEUSIA [None]
  - SWOLLEN TONGUE [None]
  - ORAL DISCOMFORT [None]
